FAERS Safety Report 6421482-X (Version None)
Quarter: 2009Q4

REPORT INFORMATION
  Report Type: 
  Country: None (occurrence: None)
  Receive Date: 20091030
  Receipt Date: 20091027
  Transmission Date: 20100525
  Serious: Yes (Hospitalization, Other)
  Sender: FDA-Public Use
  Company Number: US-PFIZER INC-2009256365

PATIENT
  Sex: Male

DRUGS (5)
  1. GEODON [Suspect]
  2. ZYPREXA [Suspect]
     Indication: SCHIZOPHRENIA
     Dosage: 20 MG, 1X/DAY
     Dates: start: 20030101
  3. KLONOPIN [Concomitant]
  4. COGENTIN [Concomitant]
  5. LAMICTAL [Concomitant]

REACTIONS (5)
  - DRUG INEFFECTIVE [None]
  - INCREASED APPETITE [None]
  - SCHIZOPHRENIA [None]
  - WEIGHT DECREASED [None]
  - WEIGHT INCREASED [None]
